FAERS Safety Report 10029074 (Version 2)
Quarter: 2014Q2

REPORT INFORMATION
  Report Type: Spontaneous
  Country: US (occurrence: US)
  Receive Date: 20140321
  Receipt Date: 20140402
  Transmission Date: 20141212
  Serious: No
  Sender: FDA-Public Use
  Company Number: US-TEVA-469684USA

PATIENT
  Sex: Male
  Weight: 77.18 kg

DRUGS (10)
  1. ACTIQ [Suspect]
     Indication: CHEST PAIN
     Route: 048
     Dates: start: 2004
  2. ACTIQ [Suspect]
     Indication: BREAKTHROUGH PAIN
  3. FENTANYL PATCH [Concomitant]
     Indication: CHEST PAIN
     Route: 061
  4. PROTONIX [Concomitant]
     Indication: PANCREATITIS
  5. DONNATAL [Concomitant]
     Indication: PANCREATITIS
  6. CRESTOR [Concomitant]
     Indication: BLOOD CHOLESTEROL INCREASED
  7. ZETIA [Concomitant]
     Indication: BLOOD CHOLESTEROL INCREASED
  8. CARDIZEM [Concomitant]
     Indication: HYPERTENSION
  9. TOPROL XL [Concomitant]
     Indication: HYPERTENSION
  10. NITROGLYCERIN [Concomitant]
     Indication: CHEST PAIN

REACTIONS (13)
  - Chest pain [Unknown]
  - Electrocardiogram abnormal [Unknown]
  - Intentional product misuse [Unknown]
  - Product quality issue [Unknown]
  - Drug ineffective [Unknown]
  - Off label use [Unknown]
  - Drug effect decreased [Unknown]
  - Breakthrough pain [Unknown]
  - Intentional product misuse [Unknown]
  - Overdose [Unknown]
  - Fall [Unknown]
  - Ligament sprain [Unknown]
  - Oral discomfort [Unknown]
